FAERS Safety Report 14648693 (Version 1)
Quarter: 2018Q1

REPORT INFORMATION
  Report Type: Other
  Country: CA (occurrence: CA)
  Receive Date: 20180316
  Receipt Date: 20180316
  Transmission Date: 20180509
  Serious: Yes (Death, Other)
  Sender: FDA-Public Use
  Company Number: CA-GLENMARK PHARMACEUTICALS-2018GMK033285

PATIENT

DRUGS (5)
  1. SANDOSTATIN [Suspect]
     Active Substance: OCTREOTIDE ACETATE
     Indication: PRODUCT USED FOR UNKNOWN INDICATION
     Dosage: 300 MCG, UNK
     Route: 058
  2. SANDOSTATIN [Suspect]
     Active Substance: OCTREOTIDE ACETATE
     Indication: METASTATIC CARCINOID TUMOUR
     Dosage: 30 MG, UNK
     Route: 030
  3. SANDOSTATIN [Suspect]
     Active Substance: OCTREOTIDE ACETATE
     Dosage: 150 MG, UNK
     Route: 058
  4. GABAPENTIN. [Suspect]
     Active Substance: GABAPENTIN
     Indication: PAIN
     Dosage: 400 MG, TID (3 EVERY 1 DAY)
     Route: 065
  5. GABAPENTIN. [Suspect]
     Active Substance: GABAPENTIN
     Indication: HYPERHIDROSIS
     Dosage: 100 MG, TID (3 EVERY 1 DAY)
     Route: 065

REACTIONS (21)
  - Hot flush [Fatal]
  - Flushing [Fatal]
  - Blood pressure increased [Fatal]
  - Fatigue [Fatal]
  - Asthenia [Fatal]
  - Death [Fatal]
  - Diabetes mellitus [Fatal]
  - Abdominal discomfort [Fatal]
  - Blood glucose fluctuation [Fatal]
  - Body temperature decreased [Fatal]
  - Nausea [Fatal]
  - Constipation [Fatal]
  - Malignant neoplasm progression [Fatal]
  - Diarrhoea [Fatal]
  - Product use in unapproved indication [Unknown]
  - Abdominal distension [Fatal]
  - Pain [Fatal]
  - Visual acuity reduced [Fatal]
  - Hyperhidrosis [Fatal]
  - Hepatic pain [Fatal]
  - Abdominal pain [Fatal]
